FAERS Safety Report 6907624-8 (Version None)
Quarter: 2010Q3

REPORT INFORMATION
  Report Type: 
  Country: None (occurrence: None)
  Receive Date: 20100713
  Receipt Date: 20090804
  Transmission Date: 20110219
  Serious: Yes (Congenital Anomaly)
  Sender: FDA-Public Use
  Company Number: 2009-11367

PATIENT

DRUGS (2)
  1. PROGESTERONE [Suspect]
     Indication: PROGESTERONE
     Dosage: REFUSED
  2. PROGESTERONE [Suspect]
     Indication: SUPPLEMENTATION THERAPY
     Dosage: REFUSED

REACTIONS (1)
  - CLEFT PALATE [None]
